FAERS Safety Report 10199519 (Version 2)
Quarter: 2014Q2

REPORT INFORMATION
  Report Type: Spontaneous
  Country: US (occurrence: US)
  Receive Date: 20140527
  Receipt Date: 20140611
  Transmission Date: 20141212
  Serious: No
  Sender: FDA-Public Use
  Company Number: US-009507513-1405USA013120

PATIENT
  Sex: Female
  Weight: 68.27 kg

DRUGS (1)
  1. OXYTROL FOR WOMEN [Suspect]
     Indication: PRODUCT USED FOR UNKNOWN INDICATION
     Dosage: UNK, UNKNOWN
     Route: 062
     Dates: start: 20140302, end: 20140503

REACTIONS (2)
  - Drug ineffective [Unknown]
  - Product adhesion issue [Unknown]
